FAERS Safety Report 12659787 (Version 1)
Quarter: 2016Q3

REPORT INFORMATION
  Report Type: Spontaneous
  Country: US (occurrence: US)
  Receive Date: 20160817
  Receipt Date: 20160817
  Transmission Date: 20161109
  Serious: No
  Sender: FDA-Public Use
  Company Number: US-SHIRE-2015DX000503

PATIENT

DRUGS (3)
  1. FIRAZYR [Concomitant]
     Active Substance: ICATIBANT ACETATE
     Indication: PRODUCT USED FOR UNKNOWN INDICATION
     Dosage: 30 MG, AS REQ^D
     Route: 065
  2. KALBITOR [Suspect]
     Active Substance: ECALLANTIDE
     Indication: HEREDITARY ANGIOEDEMA
     Dosage: 30 MG, AS REQ^D
     Route: 058
  3. CINRYZE [Concomitant]
     Active Substance: HUMAN C1-ESTERASE INHIBITOR
     Indication: PRODUCT USED FOR UNKNOWN INDICATION
     Dosage: 500 IU, 2 TIME/S EVERY 1 WEEKS
     Route: 065

REACTIONS (3)
  - Dysphonia [Not Recovered/Not Resolved]
  - Cystitis [Not Recovered/Not Resolved]
  - Sinusitis [Not Recovered/Not Resolved]

NARRATIVE: CASE EVENT DATE: 20151104
